FAERS Safety Report 20502077 (Version 3)
Quarter: 2022Q2

REPORT INFORMATION
  Report Type: Spontaneous
  Country: CZ (occurrence: None)
  Receive Date: 20220222
  Receipt Date: 20220527
  Transmission Date: 20220720
  Serious: Yes (Other)
  Sender: FDA-Public Use
  Company Number: CZ-Merck Healthcare KGaA-9301221

PATIENT
  Sex: Male

DRUGS (5)
  1. AVELUMAB [Suspect]
     Active Substance: AVELUMAB
     Indication: Renal cell carcinoma
     Route: 042
     Dates: start: 20210630, end: 202202
  2. AXITINIB [Suspect]
     Active Substance: AXITINIB
     Indication: Renal cell carcinoma
     Dosage: 5MG IN THE MORNING AND IN THE EVENING
     Route: 048
     Dates: start: 20210630, end: 202202
  3. AXITINIB [Suspect]
     Active Substance: AXITINIB
     Dosage: IN REDUCED DOSE
     Route: 048
     Dates: start: 202203
  4. ALLOPURINOL [Concomitant]
     Active Substance: ALLOPURINOL
     Indication: Product used for unknown indication
  5. ROSUVASTATIN CALCIUM [Concomitant]
     Active Substance: ROSUVASTATIN CALCIUM
     Indication: Product used for unknown indication

REACTIONS (9)
  - Diarrhoea [Recovered/Resolved]
  - Defaecation urgency [Recovered/Resolved]
  - Aphthous ulcer [Recovering/Resolving]
  - Oral discomfort [Recovered/Resolved]
  - Back pain [Recovering/Resolving]
  - Dehydration [Recovering/Resolving]
  - Fatigue [Not Recovered/Not Resolved]
  - Decreased appetite [Recovered/Resolved]
  - Weight decreased [Recovered/Resolved]

NARRATIVE: CASE EVENT DATE: 20210901
